FAERS Safety Report 25299364 (Version 1)
Quarter: 2025Q2

REPORT INFORMATION
  Report Type: Spontaneous
  Country: SG (occurrence: SG)
  Receive Date: 20250512
  Receipt Date: 20250512
  Transmission Date: 20250717
  Serious: Yes (Death)
  Sender: ROCHE
  Company Number: SG-ROCHE-10000277255

PATIENT
  Age: 31 Year
  Sex: Female

DRUGS (2)
  1. RITUXIMAB [Suspect]
     Active Substance: RITUXIMAB
     Indication: Arthritis
     Route: 042
  2. PREDNISOLONE [Suspect]
     Active Substance: PREDNISOLONE
     Indication: Arthritis
     Route: 065

REACTIONS (5)
  - Hyperammonaemia [Fatal]
  - Bacterial infection [Fatal]
  - Encephalitis [Fatal]
  - Metabolic encephalopathy [Fatal]
  - Pneumonia klebsiella [Fatal]

NARRATIVE: CASE EVENT DATE: 20240401
